FAERS Safety Report 23521731 (Version 3)
Quarter: 2024Q1

REPORT INFORMATION
  Report Type: Other
  Country: GR (occurrence: GR)
  Receive Date: 20240214
  Receipt Date: 20240226
  Transmission Date: 20240410
  Serious: Yes (Hospitalization)
  Sender: FDA-Public Use
  Company Number: GR-BoehringerIngelheim-2024-BI-006522

PATIENT
  Age: 77 Year
  Sex: Female

DRUGS (2)
  1. ALTEPLASE [Suspect]
     Active Substance: ALTEPLASE
     Indication: Cerebral ischaemia
     Route: 042
  2. ACENOCOUMAROL [Concomitant]
     Active Substance: ACENOCOUMAROL
     Indication: Product used for unknown indication

REACTIONS (2)
  - Off label use [Unknown]
  - Central nervous system lesion [Recovered/Resolved with Sequelae]
